FAERS Safety Report 7177375-6 (Version None)
Quarter: 2010Q4

REPORT INFORMATION
  Report Type: 
  Country: None (occurrence: None)
  Receive Date: 20101220
  Receipt Date: 20101207
  Transmission Date: 20110411
  Serious: Yes (Hospitalization)
  Sender: FDA-Public Use
  Company Number: PHHY2010FR84351

PATIENT
  Sex: Female
  Weight: 55 kg

DRUGS (10)
  1. NITRODERM [Interacting]
     Indication: CHEST PAIN
     Dosage: 1 DF, QD
     Route: 062
     Dates: start: 20100101, end: 20101102
  2. RASILEZ [Suspect]
     Indication: HYPERTENSION
     Dosage: 300 MG DAILY
     Route: 048
     Dates: end: 20101102
  3. FLUDEX LP [Interacting]
     Indication: HYPERTENSION
     Dosage: 1 DF, QD
     Route: 048
     Dates: start: 20101001, end: 20101102
  4. ZANIDIP [Interacting]
     Indication: HYPERTENSION
     Dosage: 1 DF, BID
     Dates: end: 20101102
  5. AVLOCARDYL [Interacting]
     Indication: HYPERTENSION
     Dosage: 40 MG, 0.5 DF, BID
     Route: 048
     Dates: end: 20101102
  6. LEVOTHYROX [Concomitant]
     Indication: HYPOTHYROIDISM
     Dosage: 50 MCG, 1 DF QD
     Route: 048
  7. LEVOTHYROX [Concomitant]
     Dosage: 0.75 MCG/D.
  8. SPIRIVA [Concomitant]
     Dosage: 18 MCG, 1 DF QD
  9. TEMESTA [Concomitant]
     Dosage: 1 MG, 1 DF BID
  10. KARDEGIC [Concomitant]
     Dosage: 75 MG, 1 DF QD
     Route: 048

REACTIONS (6)
  - CONFUSIONAL STATE [None]
  - DRUG INTERACTION [None]
  - FALL [None]
  - HYPONATRAEMIA [None]
  - HYPOTENSION [None]
  - MALAISE [None]
